FAERS Safety Report 18050802 (Version 2)
Quarter: 2020Q3

REPORT INFORMATION
  Report Type: Spontaneous
  Country: US (occurrence: US)
  Receive Date: 20200721
  Receipt Date: 20200806
  Transmission Date: 20201103
  Serious: No
  Sender: FDA-Public Use
  Company Number: US-PARI RESPIRATORY EQUIPMENT, INC.-2020PAR00041

PATIENT
  Sex: Male

DRUGS (12)
  1. HYPER?SAL NEB VIAL [Concomitant]
  2. KITABIS PAK [Suspect]
     Active Substance: TOBRAMYCIN
     Indication: LUNG DISORDER
  3. AQUADEKS [Concomitant]
     Active Substance: MINERALS\VITAMINS
  4. ALBUTEROL SULFATE. [Concomitant]
     Active Substance: ALBUTEROL SULFATE
  5. KITABIS PAK [Suspect]
     Active Substance: TOBRAMYCIN
     Indication: CYSTIC FIBROSIS
     Dosage: 300 MG (1 AMPULE) VIA NEBULIZER, 2X/DAY ALTERNATING 28 DAYS ON THEN 28 DAYS OFF
     Dates: start: 202005
  6. KITABIS PAK [Suspect]
     Active Substance: TOBRAMYCIN
     Indication: PSEUDOMONAS INFECTION
  7. ZENPEP [Concomitant]
     Active Substance: PANCRELIPASE AMYLASE\PANCRELIPASE LIPASE\PANCRELIPASE PROTEASE
  8. KITABIS PAK [Suspect]
     Active Substance: TOBRAMYCIN
     Indication: ILLNESS
  9. FAMOTIDINE. [Concomitant]
     Active Substance: FAMOTIDINE
  10. PULMOZYME [Concomitant]
     Active Substance: DORNASE ALFA
  11. BREO ELLIPTA [Concomitant]
     Active Substance: FLUTICASONE FUROATE\VILANTEROL TRIFENATATE
  12. MIRALAX [Concomitant]
     Active Substance: POLYETHYLENE GLYCOL 3350
     Dosage: 17 G

REACTIONS (1)
  - Sinusitis [Recovered/Resolved]

NARRATIVE: CASE EVENT DATE: 2020
